FAERS Safety Report 23528757 (Version 2)
Quarter: 2024Q1

REPORT INFORMATION
  Report Type: Spontaneous
  Country: JP (occurrence: JP)
  Receive Date: 20240215
  Receipt Date: 20240229
  Transmission Date: 20240409
  Serious: Yes (Other)
  Sender: FDA-Public Use
  Company Number: JP-JNJFOC-20240233979

PATIENT
  Age: 80 Year
  Sex: Male
  Weight: 62 kg

DRUGS (6)
  1. DARATUMUMAB [Suspect]
     Active Substance: DARATUMUMAB
     Indication: Plasma cell myeloma
     Dosage: DOSE UNKNOWN, 1-5 CYCLE (DLD THERAPY)
     Route: 058
     Dates: start: 20210901, end: 2022
  2. DARATUMUMAB [Suspect]
     Active Substance: DARATUMUMAB
     Dosage: DOSE UNKNOWN
     Route: 058
     Dates: start: 20210301, end: 20211116
  3. LENALIDOMIDE [Suspect]
     Active Substance: LENALIDOMIDE
     Indication: Plasma cell myeloma
     Dosage: 1-3 CYCLE (LD THERAPY)
     Route: 048
     Dates: start: 20210408, end: 2021
  4. LENALIDOMIDE [Suspect]
     Active Substance: LENALIDOMIDE
     Indication: Plasma cell myeloma
     Dosage: 4-5 CYCLE (LD THERAPY), 1 CYCLE (DLD THERAPY)
     Route: 048
     Dates: start: 20210707, end: 2021
  5. LENALIDOMIDE [Suspect]
     Active Substance: LENALIDOMIDE
     Indication: Plasma cell myeloma
     Dosage: 2-5 CYCLE (DLD THERAPY)
     Route: 048
     Dates: start: 20211006, end: 2022
  6. DEXAMETHASONE [Suspect]
     Active Substance: DEXAMETHASONE
     Indication: Plasma cell myeloma
     Route: 065
     Dates: start: 20210408, end: 2022

REACTIONS (4)
  - Cardiac failure [Unknown]
  - Subdural haematoma [Unknown]
  - Rash [Unknown]
  - Fall [Unknown]

NARRATIVE: CASE EVENT DATE: 20210101
